FAERS Safety Report 6443128-7 (Version None)
Quarter: 2009Q4

REPORT INFORMATION
  Report Type: 
  Country: None (occurrence: None)
  Receive Date: 20091117
  Receipt Date: 20091112
  Transmission Date: 20100525
  Serious: Yes (Other)
  Sender: FDA-Public Use
  Company Number: A0813879A

PATIENT
  Sex: Female

DRUGS (1)
  1. TYKERB [Suspect]
     Indication: DRUG USE FOR UNKNOWN INDICATION
     Dosage: 5TAB PER DAY
     Route: 065
     Dates: start: 20091014, end: 20091022

REACTIONS (6)
  - APHASIA [None]
  - CHEST DISCOMFORT [None]
  - COUGH [None]
  - DRY SKIN [None]
  - GASTROINTESTINAL DISORDER [None]
  - INFLUENZA [None]
